FAERS Safety Report 16334511 (Version 1)
Quarter: 2019Q2

REPORT INFORMATION
  Report Type: Spontaneous
  Country: DE (occurrence: DE)
  Receive Date: 20190520
  Receipt Date: 20190520
  Transmission Date: 20190711
  Serious: Yes (Other)
  Sender: FDA-Public Use
  Company Number: DE-SHIRE-DE201810431

PATIENT

DRUGS (14)
  1. DEKRISTOL [Concomitant]
     Active Substance: CHOLECALCIFEROL
     Indication: HYPOPARATHYROIDISM
  2. MOXONIDINE [Concomitant]
     Active Substance: MOXONIDINE
     Indication: HYPERTONIA
  3. FRUBIOSE CALCIUM [Concomitant]
     Indication: HYPOPARATHYROIDISM
  4. L-THYROXIN [Concomitant]
     Active Substance: LEVOTHYROXINE SODIUM
     Indication: THYROIDECTOMY
  5. NATPARA (PARATHYROID HORMONE) [Suspect]
     Active Substance: PARATHYROID HORMONE
     Dosage: 50 ?G, 1X/DAY:QD
     Route: 058
     Dates: start: 20171012
  6. BECLOMETASONE DIPROPIONATE [Concomitant]
     Active Substance: BECLOMETHASONE DIPROPIONATE
     Indication: ANTITUSSIVE THERAPY
  7. CORTISONE [Concomitant]
     Active Substance: CORTISONE\HYDROCORTISONE
     Indication: PRODUCT USED FOR UNKNOWN INDICATION
  8. MTX [METHOTREXATE] [Concomitant]
     Active Substance: METHOTREXATE SODIUM
     Indication: PRODUCT USED FOR UNKNOWN INDICATION
  9. BECLOMETASONE DIPROPIONATE [Concomitant]
     Active Substance: BECLOMETHASONE DIPROPIONATE
     Indication: ASTHMA
  10. NATPARA (PARATHYROID HORMONE) [Suspect]
     Active Substance: PARATHYROID HORMONE
     Indication: HYPOPARATHYROIDISM
     Dosage: 25 ?G, 1X/DAY:QD
     Route: 058
     Dates: start: 20171012
  11. ERGENYL [Concomitant]
     Active Substance: VALPROIC ACID
     Indication: EPILEPSY
  12. CALCIUM [Concomitant]
     Active Substance: CALCIUM
     Indication: HYPOPARATHYROIDISM
  13. VALSACOR [Concomitant]
     Active Substance: VALSARTAN
     Indication: HYPERTENSION
  14. EBRANTIL [Concomitant]
     Active Substance: URAPIDIL
     Indication: HYPERTONIA

REACTIONS (6)
  - Blood calcium decreased [Recovered/Resolved]
  - Sarcoidosis [Recovered/Resolved]
  - Hypocalcaemia [Recovered/Resolved]
  - Muscle spasms [Not Recovered/Not Resolved]
  - Paraesthesia [Recovered/Resolved]
  - Paraesthesia [Recovering/Resolving]

NARRATIVE: CASE EVENT DATE: 20180130
